FAERS Safety Report 15276006 (Version 1)
Quarter: 2018Q3

REPORT INFORMATION
  Report Type: Spontaneous
  Country: US (occurrence: US)
  Receive Date: 20180727
  Receipt Date: 20180727
  Transmission Date: 20181010
  Serious: Yes (Hospitalization)
  Sender: FDA-Public Use
  Company Number: None

PATIENT
  Age: 36 Year
  Sex: Male

DRUGS (8)
  1. LINEZOLID. [Concomitant]
     Active Substance: LINEZOLID
  2. METOCLOPRAMIDE. [Concomitant]
     Active Substance: METOCLOPRAMIDE
  3. ONDANSETRON [Concomitant]
     Active Substance: ONDANSETRON
  4. ALENDRONATE [Concomitant]
     Active Substance: ALENDRONATE SODIUM
  5. SULFAMETHOXAZOLE/TRIMETHOPRIM [Concomitant]
     Active Substance: SULFAMETHOXAZOLE\TRIMETHOPRIM
  6. TIGECYCLINE. [Suspect]
     Active Substance: TIGECYCLINE
     Indication: CELLULITIS
     Route: 042
     Dates: start: 20180322
  7. PREDNISONE. [Concomitant]
     Active Substance: PREDNISONE
  8. TACROLIMUS. [Concomitant]
     Active Substance: TACROLIMUS

REACTIONS (3)
  - Vomiting [None]
  - Nausea [None]
  - Small intestinal obstruction [None]

NARRATIVE: CASE EVENT DATE: 20180406
